FAERS Safety Report 6852540-3 (Version None)
Quarter: 2010Q3

REPORT INFORMATION
  Report Type: 
  Country: None (occurrence: None)
  Receive Date: 20100717
  Receipt Date: 20071116
  Transmission Date: 20110219
  Serious: No
  Sender: FDA-Public Use
  Company Number: US-PFIZER INC-2007098829

PATIENT
  Sex: Female
  Weight: 50 kg

DRUGS (7)
  1. CHANTIX [Suspect]
     Indication: SMOKING CESSATION THERAPY
     Route: 048
     Dates: start: 20071023
  2. LAMOTRIGINE [Concomitant]
  3. SIMVASTATIN [Concomitant]
  4. FOLIC ACID [Concomitant]
  5. OXYCONTIN [Concomitant]
  6. DEPAKOTE [Concomitant]
  7. LORAZEPAM [Concomitant]

REACTIONS (1)
  - HEADACHE [None]
